FAERS Safety Report 7183084-X (Version None)
Quarter: 2010Q4

REPORT INFORMATION
  Report Type: 
  Country: None (occurrence: None)
  Receive Date: 20101222
  Receipt Date: 20100831
  Transmission Date: 20110411
  Serious: No
  Sender: FDA-Public Use
  Company Number: A0879324A

PATIENT
  Age: 69 Year
  Sex: Female

DRUGS (1)
  1. RYTHMOL [Suspect]
     Route: 048

REACTIONS (1)
  - HEART RATE DECREASED [None]
